FAERS Safety Report 12997012 (Version 1)
Quarter: 2016Q4

REPORT INFORMATION
  Report Type: Spontaneous
  Country: PL (occurrence: PL)
  Receive Date: 20161205
  Receipt Date: 20161205
  Transmission Date: 20170207
  Serious: Yes (Death, Life-Threatening, Other)
  Sender: FDA-Public Use
  Company Number: PL-ROCHE-1860765

PATIENT

DRUGS (3)
  1. CARBOPLATIN. [Suspect]
     Active Substance: CARBOPLATIN
     Indication: OVARIAN CANCER
     Dosage: AUC 5-7.5, D.1
     Route: 065
  2. AVASTIN [Suspect]
     Active Substance: BEVACIZUMAB
     Indication: OVARIAN CANCER
     Dosage: D.1
     Route: 042
  3. PACLITAXEL. [Suspect]
     Active Substance: PACLITAXEL
     Indication: OVARIAN CANCER
     Dosage: D. 1, EVERY THREE WEEKS X 6
     Route: 065

REACTIONS (14)
  - Hydronephrosis [Unknown]
  - Proteinuria [Unknown]
  - Perforation [Unknown]
  - Neutropenia [Unknown]
  - Adhesion [Unknown]
  - Neurotoxicity [Unknown]
  - Hepatic failure [Fatal]
  - Metastases to central nervous system [Fatal]
  - Mucosal haemorrhage [Unknown]
  - Thrombocytopenia [Unknown]
  - Impaired healing [Unknown]
  - Disease progression [Unknown]
  - Anaemia [Unknown]
  - Obstruction [Fatal]
